FAERS Safety Report 9261375 (Version 1)
Quarter: 2013Q2

REPORT INFORMATION
  Report Type: Spontaneous
  Country: US (occurrence: US)
  Receive Date: 20130429
  Receipt Date: 20130429
  Transmission Date: 20140414
  Serious: No
  Sender: FDA-Public Use
  Company Number: US-AMGEN-USASP2012078095

PATIENT
  Sex: 0

DRUGS (2)
  1. SENSIPAR [Suspect]
     Indication: PRODUCT USED FOR UNKNOWN INDICATION
     Dosage: 180 MG, QD
     Dates: start: 201210
  2. VITAMIN D                          /00318501/ [Concomitant]
     Dosage: UNK

REACTIONS (2)
  - Blood parathyroid hormone increased [Unknown]
  - Blood calcium decreased [Unknown]
